FAERS Safety Report 10066266 (Version 1)
Quarter: 2014Q2

REPORT INFORMATION
  Report Type: Spontaneous
  Country: US (occurrence: None)
  Receive Date: 20140402
  Receipt Date: 20140402
  Transmission Date: 20141212
  Serious: Yes (Life-Threatening, Hospitalization)
  Sender: FDA-Public Use
  Company Number: 2013STPI000363

PATIENT
  Age: 33 Year
  Sex: Male
  Weight: 89 kg

DRUGS (5)
  1. ONCASPAR [Suspect]
     Indication: PRODUCT USED FOR UNKNOWN INDICATION
     Route: 042
     Dates: start: 20120909, end: 20120909
  2. ACETAMINOPHEN (PARACETAMOL) [Concomitant]
  3. DIPHENHYDRAMINE (DIPHENHYDRAMINE HYDROCHLORIDE) [Concomitant]
  4. HYDROCORTISONE [Concomitant]
  5. VINCRISTINE (VINCRISTINE SULFATE) [Concomitant]

REACTIONS (1)
  - Anaphylactic reaction [None]
